FAERS Safety Report 9307112 (Version 3)
Quarter: 2013Q3

REPORT INFORMATION
  Report Type: Spontaneous
  Country: US (occurrence: US)
  Receive Date: 20130524
  Receipt Date: 20130806
  Transmission Date: 20140515
  Serious: No
  Sender: FDA-Public Use
  Company Number: US-009507513-1305USA012681

PATIENT
  Age: 49 Year
  Sex: Female
  Weight: 113.38 kg

DRUGS (8)
  1. VICTRELIS [Suspect]
     Indication: HEPATITIS C
     Dosage: 800 MG, TID, WITH MEALS EVERY 7-9 HOURS
     Route: 048
  2. VICTRELIS [Suspect]
     Dosage: 800 MG, TID, WITH MEALS EVEY 7-9 HOURS
     Route: 048
     Dates: start: 20130531
  3. REBETOL [Suspect]
     Route: 048
  4. PEGASYS [Suspect]
     Dosage: PROCLICK
     Route: 058
  5. KLOR-CON [Concomitant]
     Dosage: 8 TABLETS, 8 MEQ
     Route: 048
  6. CHLORTHALIDONE [Concomitant]
     Dosage: UNKNOWN
     Route: 048
  7. COZAAR [Concomitant]
     Route: 048
  8. HYDROCORT [Concomitant]

REACTIONS (7)
  - White blood cell count decreased [Unknown]
  - Dysgeusia [Not Recovered/Not Resolved]
  - Rash [Unknown]
  - Fatigue [Unknown]
  - Nausea [Unknown]
  - Red blood cell count decreased [Unknown]
  - Drug dose omission [Unknown]
